FAERS Safety Report 24638475 (Version 1)
Quarter: 2024Q4

REPORT INFORMATION
  Report Type: Spontaneous
  Country: US (occurrence: None)
  Receive Date: 20241119
  Receipt Date: 20241119
  Transmission Date: 20250114
  Serious: Yes (Hospitalization)
  Sender: Public
  Company Number: None

PATIENT
  Age: 74 Year
  Sex: Male
  Weight: 97 kg

DRUGS (2)
  1. DONEPEZIL HYDROCHLORIDE [Suspect]
     Active Substance: DONEPEZIL HYDROCHLORIDE
     Indication: Dementia
     Dates: start: 20240521
  2. CARVEDILOL [Suspect]
     Active Substance: CARVEDILOL

REACTIONS (4)
  - Bradycardia [None]
  - Anaemia [None]
  - Cardiac failure congestive [None]
  - Dysarthria [None]

NARRATIVE: CASE EVENT DATE: 20240817
